FAERS Safety Report 6946324-5 (Version None)
Quarter: 2010Q3

REPORT INFORMATION
  Report Type: 
  Country: None (occurrence: None)
  Receive Date: 20100824
  Receipt Date: 20100812
  Transmission Date: 20110219
  Serious: Yes (Death, Hospitalization)
  Sender: FDA-Public Use
  Company Number: 2010AC000491

PATIENT
  Age: 82 Year
  Sex: Female

DRUGS (76)
  1. DIGOXIN [Suspect]
     Dosage: 0.25 MG, QD, PO
     Route: 048
     Dates: start: 19980201, end: 20020831
  2. DIGOXIN [Suspect]
     Dosage: 0.25 MG; T,TH, S, SN, PO
     Route: 048
     Dates: start: 20020902
  3. DIGOXIN [Suspect]
     Dosage: 0.125 MG;QD; PO
     Route: 048
     Dates: start: 20030101, end: 20090714
  4. DIGOXIN [Suspect]
     Dosage: 0.125 MG, M, W, F, PO
     Route: 048
     Dates: start: 20020902
  5. DIGOXIN [Suspect]
     Dosage: 0.125 MG QD, PO
     Route: 048
     Dates: start: 20070201, end: 20080101
  6. DIGOXIN [Suspect]
     Dosage: 0.25 MG QD, PO
     Route: 048
     Dates: start: 20080101, end: 20080213
  7. DIGOXIN [Suspect]
     Dosage: 0.125 MG;QD;PO
     Route: 048
     Dates: start: 20080214, end: 20080321
  8. SPIRIVA [Concomitant]
  9. PRAVACHOL [Concomitant]
  10. ASPIRIN [Concomitant]
  11. CIPRO [Concomitant]
  12. FEMARA [Concomitant]
  13. ARCURI [Concomitant]
  14. LUTEIN [Concomitant]
  15. NITROGLYCERIN [Concomitant]
  16. STOOL SOFTNER [Concomitant]
  17. VASOTEC [Concomitant]
  18. VIOXX [Concomitant]
  19. PAXIL [Concomitant]
  20. NITROSTAT [Concomitant]
  21. MAGNESIUM OXIDE [Concomitant]
  22. XANAX [Concomitant]
  23. LOPRESSOR [Concomitant]
  24. AVELOX [Concomitant]
  25. ENALAPRIL [Concomitant]
  26. CLOTRIM/BETA DIPROP [Concomitant]
  27. BENZONATATE [Concomitant]
  28. ZITHROMAX [Concomitant]
  29. NYSTATIN [Concomitant]
  30. FLUCONAZOLE [Concomitant]
  31. AMOXIL [Concomitant]
  32. DIFLUCAN [Concomitant]
  33. NIZORAL [Concomitant]
  34. AMBIEN [Concomitant]
  35. TRIAMTERENE AND HYDROCHLOROTHIAZIDE [Concomitant]
  36. ALPRAZOLAM [Concomitant]
  37. FEMARA [Concomitant]
  38. ETHEDENT [Concomitant]
  39. BIAXIN [Concomitant]
  40. SUCRALFATE [Concomitant]
  41. PREDNISONE [Concomitant]
  42. LORAZEPAM [Concomitant]
  43. HYOSCYAMINE [Concomitant]
  44. PROCHLORPERAZINE [Concomitant]
  45. ACETAMINOPHEN [Concomitant]
  46. SENNALAX-S [Concomitant]
  47. TEMAZEPAM [Concomitant]
  48. ALBUTEROL [Concomitant]
  49. OXYCODONE HCL AND ACETAMINOPHEN [Concomitant]
  50. LASIX [Concomitant]
  51. KLOR-CON [Concomitant]
  52. MORPHINE SULFATE [Concomitant]
  53. MAXZIDE [Concomitant]
  54. ANTIVERT [Concomitant]
  55. MECLIZINE [Concomitant]
  56. ASPIRIN [Concomitant]
  57. VITAMINS [Concomitant]
  58. PEPCID [Concomitant]
  59. ESTROGEN [Concomitant]
  60. VERAPAMIL [Concomitant]
  61. ASPIRIN [Concomitant]
  62. LOTRISONE [Concomitant]
  63. ULTRAM [Concomitant]
  64. PREVIDENT CREAM [Concomitant]
  65. ALEVE (CAPLET) [Concomitant]
  66. BENADRYL [Concomitant]
  67. PHENERGAN SUPPOSITORY [Concomitant]
  68. CLOTRIMAZOLE [Concomitant]
  69. DESOXIMETAS OINTMENT [Concomitant]
  70. TOBRAMYCIN SOLUTION [Concomitant]
  71. MUCINEX [Concomitant]
  72. LOVENOX [Concomitant]
  73. NEBULIZERS [Concomitant]
  74. COMPAZINE [Concomitant]
  75. ACETAMINOPHEN SUPPOSITORIES [Concomitant]
  76. POTASSIUM [Concomitant]

REACTIONS (39)
  - ASTHENIA [None]
  - ATELECTASIS [None]
  - BLOOD PRESSURE SYSTOLIC DECREASED [None]
  - BREAST CANCER METASTATIC [None]
  - BREAST CANCER RECURRENT [None]
  - BRONCHIECTASIS [None]
  - BRONCHITIS [None]
  - BRONCHITIS CHRONIC [None]
  - CARDIOACTIVE DRUG LEVEL DECREASED [None]
  - CEREBRAL ATROPHY [None]
  - CHRONIC OBSTRUCTIVE PULMONARY DISEASE [None]
  - CONDITION AGGRAVATED [None]
  - COUGH [None]
  - DEMENTIA ALZHEIMER'S TYPE [None]
  - DIASTOLIC DYSFUNCTION [None]
  - DYSPNOEA [None]
  - ELECTROCARDIOGRAM ST-T CHANGE [None]
  - HEPATIC CANCER METASTATIC [None]
  - HEPATIC NEOPLASM MALIGNANT [None]
  - HYPOXIA [None]
  - LEFT VENTRICULAR DYSFUNCTION [None]
  - LEFT VENTRICULAR HYPERTROPHY [None]
  - LETHARGY [None]
  - LYMPHANGITIS [None]
  - MALAISE [None]
  - MALIGNANT NEOPLASM OF SPINAL CORD [None]
  - METASTASES TO LIVER [None]
  - MYCOBACTERIUM TUBERCULOSIS COMPLEX TEST POSITIVE [None]
  - NAUSEA [None]
  - PLEURAL EFFUSION [None]
  - PLEURAL FIBROSIS [None]
  - PLEURISY [None]
  - PNEUMONIA [None]
  - STAPHYLOCOCCAL INFECTION [None]
  - SYNCOPE [None]
  - THERAPEUTIC AGENT TOXICITY [None]
  - URINARY TRACT INFECTION [None]
  - VERTIGO POSITIONAL [None]
  - VOMITING [None]
